FAERS Safety Report 9251981 (Version 1)
Quarter: 2013Q2

REPORT INFORMATION
  Report Type: Spontaneous
  Country: US (occurrence: US)
  Receive Date: 20130424
  Receipt Date: 20130424
  Transmission Date: 20140414
  Serious: No
  Sender: FDA-Public Use
  Company Number: US-PFIZER INC-2013123754

PATIENT
  Age: 3 Decade
  Sex: Female

DRUGS (2)
  1. ALSUMA [Suspect]
     Indication: HEADACHE
     Dosage: UNK
  2. ALSUMA [Suspect]
     Indication: MIGRAINE

REACTIONS (1)
  - Palpitations [Unknown]
